FAERS Safety Report 23271803 (Version 1)
Quarter: 2023Q4

REPORT INFORMATION
  Report Type: Spontaneous
  Country: US (occurrence: US)
  Receive Date: 20231207
  Receipt Date: 20231207
  Transmission Date: 20240109
  Serious: No
  Sender: FDA-Public Use
  Company Number: US-GILEAD-2023-0653087

PATIENT
  Age: 70 Year
  Sex: Female

DRUGS (1)
  1. SOFOSBUVIR\VELPATASVIR\VOXILAPREVIR [Suspect]
     Active Substance: SOFOSBUVIR\VELPATASVIR\VOXILAPREVIR
     Indication: Hepatitis C virus test positive
     Dosage: UNK
     Route: 065

REACTIONS (2)
  - Neoplasm [Recovered/Resolved]
  - Viraemia [Unknown]
